FAERS Safety Report 22125151 (Version 4)
Quarter: 2024Q4

REPORT INFORMATION
  Report Type: Report from Study
  Country: CZ (occurrence: CZ)
  Receive Date: 20230322
  Receipt Date: 20241105
  Transmission Date: 20250115
  Serious: Yes (Other)
  Sender: ROCHE
  Company Number: CZ-ROCHE-3315069

PATIENT
  Age: 3 Year
  Sex: Female
  Weight: 25.0 kg

DRUGS (3)
  1. ENTRECTINIB [Suspect]
     Active Substance: ENTRECTINIB
     Indication: Brain stem glioma
     Route: 048
     Dates: start: 202106
  2. NIVOLUMAB [Concomitant]
     Active Substance: NIVOLUMAB
  3. TEMOZOLOMIDE [Concomitant]
     Active Substance: TEMOZOLOMIDE

REACTIONS (1)
  - Osteonecrosis [Not Recovered/Not Resolved]
